FAERS Safety Report 10541877 (Version 1)
Quarter: 2014Q4

REPORT INFORMATION
  Report Type: Report from Study
  Country: BR (occurrence: BR)
  Receive Date: 20141024
  Receipt Date: 20141024
  Transmission Date: 20150529
  Serious: Yes (Other)
  Sender: FDA-Public Use
  Company Number: PHHY2014BR137703

PATIENT
  Sex: Female

DRUGS (4)
  1. EXELON PATCH [Suspect]
     Active Substance: RIVASTIGMINE
     Indication: OFF LABEL USE
  2. ANAFRANIL [Suspect]
     Active Substance: CLOMIPRAMINE HYDROCHLORIDE
     Indication: DEPRESSION
     Dosage: 2 DF (2 TABLETS), QHS
     Route: 065
  3. EXELON PATCH [Suspect]
     Active Substance: RIVASTIGMINE
     Indication: PROPHYLAXIS
     Dosage: 9.5 MG (PATCH 10CM2), QD
     Route: 062
  4. DONAREN [Suspect]
     Active Substance: TRAZODONE HYDROCHLORIDE
     Indication: DEPRESSION
     Route: 065

REACTIONS (10)
  - Confusional state [Unknown]
  - Nightmare [Recovered/Resolved]
  - Fall [Unknown]
  - Hypotension [Unknown]
  - Dementia Alzheimer^s type [Unknown]
  - Urinary incontinence [Unknown]
  - Memory impairment [Unknown]
  - Head injury [Unknown]
  - Balance disorder [Not Recovered/Not Resolved]
  - Staring [Unknown]
